FAERS Safety Report 8252634-4 (Version None)
Quarter: 2012Q2

REPORT INFORMATION
  Report Type: 
  Country: None (occurrence: None)
  Receive Date: 20120402
  Receipt Date: 20111121
  Transmission Date: 20120825
  Serious: No
  Sender: FDA-Public Use
  Company Number: US-ABBOTT-11P-163-0876101-00

PATIENT
  Age: 60 Year
  Sex: Male
  Weight: 90.8 kg

DRUGS (3)
  1. ANDROGEL [Suspect]
     Indication: ERECTILE DYSFUNCTION
  2. ANDROGEL [Suspect]
     Indication: FATIGUE
     Dosage: 3 PUMPS/DAY
     Route: 061
     Dates: start: 20110601
  3. UNKNOWN BLOOD PRESSURE MEDICATION [Concomitant]
     Indication: HYPERTENSION

REACTIONS (3)
  - DRUG ADMINISTERED AT INAPPROPRIATE SITE [None]
  - FATIGUE [None]
  - OFF LABEL USE [None]
